FAERS Safety Report 8785898 (Version 1)
Quarter: 2012Q4

REPORT INFORMATION
  Report Type: 
  Country: AR (occurrence: AR)
  Receive Date: 20120914
  Receipt Date: 20120914
  Transmission Date: 20130627
  Serious: Yes (Hospitalization)
  Sender: FDA-Public Use
  Company Number: PHHY2012AR079356

PATIENT
  Sex: Female

DRUGS (2)
  1. DIOVAN [Suspect]
     Indication: HYPERTENSION
     Dosage: 160 mg, daily
     Dates: end: 2010
  2. DIOVAN [Suspect]
     Dosage: 320 mg, daily
     Dates: start: 2010

REACTIONS (1)
  - Device dislocation [Recovered/Resolved]
